FAERS Safety Report 11901728 (Version 4)
Quarter: 2016Q1

REPORT INFORMATION
  Report Type: Report from Study
  Country: US (occurrence: US)
  Receive Date: 20160108
  Receipt Date: 20160111
  Transmission Date: 20160526
  Serious: No
  Sender: FDA-Public Use
  Company Number: US-ABBVIE-15P-163-1447068-00

PATIENT
  Age: 62 Year
  Sex: Male

DRUGS (2)
  1. VIEKIRA PAK [Suspect]
     Active Substance: DASABUVIR\OMBITASVIR\PARITAPREVIR\RITONAVIR
     Indication: HEPATITIS C
     Route: 048
     Dates: end: 20150818
  2. RIBAVIRIN. [Concomitant]
     Active Substance: RIBAVIRIN
     Indication: HEPATITIS C
     Route: 048

REACTIONS (6)
  - Dizziness [Unknown]
  - Back pain [Unknown]
  - Nasopharyngitis [Recovered/Resolved]
  - Hot flush [Unknown]
  - Disorientation [Unknown]
  - Fear [Unknown]

NARRATIVE: CASE EVENT DATE: 201508
